FAERS Safety Report 9904858 (Version 1)
Quarter: 2014Q1

REPORT INFORMATION
  Report Type: Spontaneous
  Country: US (occurrence: US)
  Receive Date: 20140218
  Receipt Date: 20140218
  Transmission Date: 20141002
  Serious: Yes (Other)
  Sender: FDA-Public Use
  Company Number: US-PFIZER INC-2014039260

PATIENT
  Age: 63 Year
  Sex: Male
  Weight: 72.56 kg

DRUGS (3)
  1. LYRICA [Suspect]
     Indication: DIABETIC NEUROPATHY
     Dosage: 200 MG, 2X/DAY
     Route: 048
     Dates: start: 2013
  2. METFORMIN [Concomitant]
     Indication: DIABETES MELLITUS
     Dosage: UNK
  3. CALICIDE [Concomitant]
     Dosage: UNK

REACTIONS (4)
  - Foot deformity [Unknown]
  - Pain in extremity [Unknown]
  - Arthralgia [Unknown]
  - Burning feet syndrome [Unknown]
